FAERS Safety Report 11858362 (Version 7)
Quarter: 2017Q2

REPORT INFORMATION
  Report Type: Spontaneous
  Country: US (occurrence: US)
  Receive Date: 20151222
  Receipt Date: 20170418
  Transmission Date: 20170829
  Serious: No
  Sender: FDA-Public Use
  Company Number: US-ASTRAZENECA-2015SF26262

PATIENT
  Sex: Male

DRUGS (2)
  1. SYMBICORT [Suspect]
     Active Substance: BUDESONIDE\FORMOTEROL FUMARATE DIHYDRATE
     Indication: CHRONIC OBSTRUCTIVE PULMONARY DISEASE
     Dosage: 160/4.5 UG, 2 PUFFS TWICE DAILY
     Route: 055
  2. SYMBICORT [Suspect]
     Active Substance: BUDESONIDE\FORMOTEROL FUMARATE DIHYDRATE
     Indication: ASTHMA
     Dosage: 160/4.5 UG, 2 PUFFS TWICE DAILY
     Route: 055

REACTIONS (5)
  - Device malfunction [Unknown]
  - Dyspnoea [Unknown]
  - Drug dose omission [Unknown]
  - Intentional product misuse [Unknown]
  - Product packaging quantity issue [Not Recovered/Not Resolved]
